FAERS Safety Report 17311659 (Version 1)
Quarter: 2020Q1

REPORT INFORMATION
  Report Type: Spontaneous
  Country: US (occurrence: US)
  Receive Date: 20200123
  Receipt Date: 20200123
  Transmission Date: 20200409
  Serious: No
  Sender: FDA-Public Use
  Company Number: US-ROCHE-2269633

PATIENT

DRUGS (4)
  1. LYRICA [Concomitant]
     Active Substance: PREGABALIN
     Dosage: TAKE TWO CAPSULES THREE TIMES DAILY.
     Route: 065
  2. STADOL [Concomitant]
     Active Substance: BUTORPHANOL TARTRATE
  3. REMICADE [Concomitant]
     Active Substance: INFLIXIMAB
  4. RITUXAN [Suspect]
     Active Substance: RITUXIMAB
     Indication: PRODUCT USED FOR UNKNOWN INDICATION
     Route: 065

REACTIONS (1)
  - Drug hypersensitivity [Unknown]
